FAERS Safety Report 18579425 (Version 1)
Quarter: 2020Q4

REPORT INFORMATION
  Report Type: Spontaneous
  Country: MY (occurrence: MY)
  Receive Date: 20201204
  Receipt Date: 20201204
  Transmission Date: 20210114
  Serious: Yes (Other)
  Sender: FDA-Public Use
  Company Number: MY-SUN PHARMACEUTICAL INDUSTRIES LTD-2020R1-269570

PATIENT
  Sex: Female

DRUGS (2)
  1. LETROZOLE. [Suspect]
     Active Substance: LETROZOLE
     Indication: OVARIAN CANCER
     Dosage: 2.5 MILLIGRAM, OD
     Route: 048
     Dates: start: 2017
  2. PALBOCICLIB [Suspect]
     Active Substance: PALBOCICLIB
     Indication: OVARIAN CANCER
     Dosage: 125 MILLIGRAM, OD(3 WEEKS ON AND 1 WEEK OFF SCHEDULE)
     Route: 065
     Dates: start: 2017

REACTIONS (2)
  - Neutropenia [Unknown]
  - Leukopenia [Unknown]
